FAERS Safety Report 6916706-6 (Version None)
Quarter: 2010Q3

REPORT INFORMATION
  Report Type: 
  Country: None (occurrence: None)
  Receive Date: 20100810
  Receipt Date: 20100809
  Transmission Date: 20110219
  Serious: Yes (Other)
  Sender: FDA-Public Use
  Company Number: FR-WYE-G06374710

PATIENT
  Sex: Male
  Weight: 72 kg

DRUGS (6)
  1. RAPAMUNE [Suspect]
     Indication: SKIN CANCER
     Dosage: 1 MG TOTAL DAILY
     Route: 048
     Dates: start: 20080930, end: 20100422
  2. PLAVIX [Concomitant]
     Dosage: 75 MG TOTAL DAILY
     Route: 048
     Dates: start: 20071219
  3. ATENOLOL [Concomitant]
     Dosage: 25 MG TOTAL DAILY
     Route: 048
     Dates: start: 20001219
  4. TAHOR [Concomitant]
     Dosage: 40 MG TOTAL DAILY
     Route: 048
     Dates: start: 19990825
  5. CELLCEPT [Concomitant]
     Dosage: 1500 MG TOTAL DAILY
     Route: 048
     Dates: start: 19990202
  6. RAMIPRIL [Concomitant]
     Dosage: 2.5 MG
     Route: 048
     Dates: start: 20050803

REACTIONS (2)
  - DYSPNOEA [None]
  - LYMPHOEDEMA [None]
